FAERS Safety Report 5308047-8 (Version None)
Quarter: 2007Q1

REPORT INFORMATION
  Report Type: 
  Country: None (occurrence: None)
  Receive Date: 20070201
  Receipt Date: 20061031
  Transmission Date: 20070707
  Serious: Yes (Hospitalization)
  Sender: FDA-Public Use
  Company Number: 2006PV024252

PATIENT
  Age: 54 Year
  Sex: Female
  Weight: 84.8226 kg

DRUGS (4)
  1. BYETTA [Suspect]
     Indication: DIABETES MELLITUS NON-INSULIN-DEPENDENT
     Dosage: SEE IMAGE
     Route: 048
     Dates: start: 20060901, end: 20060930
  2. BYETTA [Suspect]
     Indication: DIABETES MELLITUS NON-INSULIN-DEPENDENT
     Dosage: SEE IMAGE
     Route: 048
     Dates: start: 20061001, end: 20061009
  3. SYNTHROID [Concomitant]
  4. ADDERALL 10 [Concomitant]

REACTIONS (5)
  - DECREASED APPETITE [None]
  - DEHYDRATION [None]
  - ERUCTATION [None]
  - NAUSEA [None]
  - VOMITING [None]
